FAERS Safety Report 6171606-7 (Version None)
Quarter: 2009Q2

REPORT INFORMATION
  Report Type: 
  Country: None (occurrence: None)
  Receive Date: 20090428
  Receipt Date: 20090428
  Transmission Date: 20091009
  Serious: Yes (Life-Threatening, Hospitalization)
  Sender: FDA-Public Use
  Company Number: None

PATIENT
  Sex: Female
  Weight: 68.0396 kg

DRUGS (10)
  1. RECLAST [Suspect]
     Dosage: IV
     Route: 042
  2. NEXIUM [Concomitant]
  3. METOPROLOL [Concomitant]
  4. IMDUR [Concomitant]
  5. AMLODIPINE [Concomitant]
  6. SIMVASTATIN [Concomitant]
  7. ASPIRIN [Concomitant]
  8. PLAVIX [Concomitant]
  9. PREMARIN [Concomitant]
  10. CIPRO [Concomitant]

REACTIONS (2)
  - BLOOD CREATINE INCREASED [None]
  - URINARY TRACT INFECTION [None]
